FAERS Safety Report 9322189 (Version 1)
Quarter: 2013Q2

REPORT INFORMATION
  Report Type: Spontaneous
  Country: GB (occurrence: GB)
  Receive Date: 20130531
  Receipt Date: 20130531
  Transmission Date: 20140414
  Serious: Yes (Hospitalization, Other)
  Sender: FDA-Public Use
  Company Number: GB-ABBOTT-13X-167-1097453-00

PATIENT
  Age: 21 Year
  Sex: Male

DRUGS (8)
  1. DEPAKOTE [Suspect]
     Indication: AFFECTIVE DISORDER
     Dosage: EXTENDED RELEASE
     Route: 048
  2. DEPAKOTE [Suspect]
     Indication: DRUG THERAPY
  3. HALDOL [Suspect]
     Indication: ABNORMAL BEHAVIOUR
     Route: 030
     Dates: start: 20130408, end: 20130408
  4. HALDOL [Suspect]
     Indication: MENTAL DISORDER
     Route: 030
     Dates: start: 20130331, end: 20130331
  5. HALDOL [Suspect]
     Indication: MANIA
  6. HALOPERIDOL [Suspect]
     Indication: PRODUCT USED FOR UNKNOWN INDICATION
     Route: 048
  7. PROCYCLIDINE [Concomitant]
     Indication: PRODUCT USED FOR UNKNOWN INDICATION
  8. ZUCLOPENTHIXOL DECANOATE [Concomitant]
     Indication: PRODUCT USED FOR UNKNOWN INDICATION

REACTIONS (5)
  - Dystonia [Unknown]
  - Hypertonia [Unknown]
  - Gait disturbance [Unknown]
  - Sedation [Unknown]
  - Coma scale abnormal [Unknown]
